FAERS Safety Report 7937351-X (Version None)
Quarter: 2011Q4

REPORT INFORMATION
  Report Type: 
  Country: None (occurrence: None)
  Receive Date: 20111123
  Receipt Date: 20111117
  Transmission Date: 20120403
  Serious: Yes (Hospitalization)
  Sender: FDA-Public Use
  Company Number: CH-PFIZER INC-2011285819

PATIENT
  Age: 42 Year
  Sex: Female

DRUGS (2)
  1. PANTOPRAZOLE SODIUM [Suspect]
     Dosage: 40 MG, 1X/DAY
     Route: 048
     Dates: start: 20090522
  2. CIPROFLAXACIN [Suspect]
     Indication: CYSTITIS
     Dosage: 500 MG, 2X/DAY
     Route: 048
     Dates: start: 20110522, end: 20110524

REACTIONS (2)
  - ANAEMIA [None]
  - THROMBOCYTOPENIA [None]
